FAERS Safety Report 20016969 (Version 2)
Quarter: 2024Q2

REPORT INFORMATION
  Report Type: Spontaneous
  Country: IN (occurrence: IN)
  Receive Date: 20211030
  Receipt Date: 20240521
  Transmission Date: 20240716
  Serious: Yes (Life-Threatening, Hospitalization, Other)
  Sender: FDA-Public Use
  Company Number: None

PATIENT

DRUGS (2)
  1. MONTELUKAST [Suspect]
     Active Substance: MONTELUKAST SODIUM
     Indication: Asthma
     Dosage: EVERY DAY FOR THE PAST YEAR
     Route: 048
  2. Formoterol budesonide [Concomitant]
     Indication: Asthma
     Dosage: DRY POWDER INHALER IRREGULARLY
     Route: 065

REACTIONS (5)
  - Peripheral sensory neuropathy [Recovering/Resolving]
  - Cutaneous vasculitis [Recovering/Resolving]
  - Mononeuropathy [Recovering/Resolving]
  - Bronchiectasis [Recovering/Resolving]
  - Eosinophilic granulomatosis with polyangiitis [Recovering/Resolving]
